FAERS Safety Report 4553002-9 (Version None)
Quarter: 2005Q1

REPORT INFORMATION
  Report Type: 
  Country: None (occurrence: None)
  Receive Date: 20050113
  Receipt Date: 20050103
  Transmission Date: 20050727
  Serious: Yes (Hospitalization)
  Sender: FDA-Public Use
  Company Number: 2005CG00012

PATIENT
  Age: 75 Year
  Sex: Male

DRUGS (6)
  1. NEXIUM [Suspect]
     Indication: GASTRITIS
     Dates: start: 20040815, end: 20041119
  2. PLAVIX [Suspect]
     Indication: MYOCARDIAL ISCHAEMIA
     Dates: end: 20041117
  3. RODOGYL [Suspect]
     Indication: BACTERIAL INFECTION
     Dates: start: 20041102, end: 20041106
  4. CLONAZEPAM [Suspect]
     Indication: SLEEP DISORDER
     Dates: start: 20040801, end: 20041119
  5. AMAREL [Concomitant]
  6. ALLOPURINOL [Concomitant]

REACTIONS (5)
  - ABSCESS ORAL [None]
  - AGRANULOCYTOSIS [None]
  - GENERAL PHYSICAL HEALTH DETERIORATION [None]
  - HYPERTHERMIA [None]
  - RENAL FAILURE [None]
